FAERS Safety Report 9517201 (Version 2)
Quarter: 2013Q3

REPORT INFORMATION
  Report Type: Spontaneous
  Country: US (occurrence: US)
  Receive Date: 20130911
  Receipt Date: 20130912
  Transmission Date: 20140515
  Serious: No
  Sender: FDA-Public Use
  Company Number: US-ASTRAZENECA-2013SE56890

PATIENT
  Age: 38 Year
  Sex: Female
  Weight: 84.4 kg

DRUGS (4)
  1. SYMBICORT PMDI [Suspect]
     Indication: ASTHMA
     Dosage: 160,2 PUFFS BID
     Route: 055
     Dates: start: 20130718, end: 20130719
  2. ALBUTEROL [Concomitant]
     Indication: ASTHMA
  3. PREDNISONE [Concomitant]
     Indication: ASTHMA
  4. SOLUMEDROL [Concomitant]
     Route: 050

REACTIONS (2)
  - Flushing [Recovered/Resolved]
  - Dizziness [Recovered/Resolved]
